FAERS Safety Report 24886252 (Version 1)
Quarter: 2025Q1

REPORT INFORMATION
  Report Type: Spontaneous
  Country: CN (occurrence: CN)
  Receive Date: 20250125
  Receipt Date: 20250125
  Transmission Date: 20250409
  Serious: Yes (Hospitalization)
  Sender: JIANGSU HENGRUI PHARMACEUTICALS CO., LTD.
  Company Number: CN-JIANGSU HENGRUI PHARMACEUTICALS CO., LTD.-H2025200249

PATIENT
  Age: 74 Year
  Weight: 85 kg

DRUGS (3)
  1. PACLITAXEL [Suspect]
     Active Substance: PACLITAXEL
     Indication: Malignant neoplasm of unknown primary site
     Dosage: 300 MG, Q3W
  2. BEVACIZUMAB [Suspect]
     Active Substance: BEVACIZUMAB
     Indication: Malignant neoplasm of unknown primary site
     Dosage: 660 MG, Q3W
  3. SINTILIMAB [Suspect]
     Active Substance: SINTILIMAB
     Indication: Malignant neoplasm of unknown primary site
     Dosage: 200 MG, Q3W

REACTIONS (1)
  - Seizure [Recovering/Resolving]
